FAERS Safety Report 10435141 (Version 2)
Quarter: 2014Q1

REPORT INFORMATION
  Report Type: Spontaneous
  Country: US (occurrence: None)
  Receive Date: 20130807
  Receipt Date: 20130910
  Transmission Date: 20141002
  Serious: Yes (Other)
  Sender: FDA-Public Use
  Company Number: AUR-APL-2013-04291

PATIENT
  Age: 66 Year
  Sex: Female

DRUGS (16)
  1. ATENOLOL [Suspect]
     Indication: HYPERTENSION
     Dosage: 25 MG, 1 D
     Route: 048
     Dates: start: 2006
  2. ARIMIDEX (ANASTROZOLE) [Suspect]
     Indication: BREAST CANCER
     Dosage: 1 MG, 1 D
     Route: 048
     Dates: start: 20100501
  3. OMEPRAZOLE (OMEPRAZOLE) [Suspect]
     Indication: GASTRIC DISORDER
     Dosage: 40 MG, 1 D
     Route: 048
     Dates: start: 201207
  4. LANTUS (INSULIN GLARGINE) [Concomitant]
  5. NOVOLOG (INSULIN ASPART) [Concomitant]
  6. PLAVIX (CLOPIDOGREL BISULFATE) [Concomitant]
  7. ASPIRINE (ACETYLSALICYLIC ACID) [Concomitant]
  8. ISOSORBIDE MONONITRATE (ISOSORBIDE MONONITRATE) [Concomitant]
  9. LEVOXYL (LEVOTHYROXINE SODIUM) [Concomitant]
  10. CLOBEX (CLOXACILLIN SODIUM) [Concomitant]
  11. LOVASTATIN (LOVASTATIN) [Concomitant]
  12. METFORMIN (METFORMIN) [Concomitant]
  13. BENICAR (OLMESARTAN MEDOXOMIL) [Concomitant]
  14. ALPRAZOLAM (ALPRAZOLAM) [Concomitant]
  15. RANITIDINE (RANITIDINE) [Concomitant]
  16. TRIAMCINOLONE ACETONIDE (TRIAMCINOLONE ACETONIDE) [Concomitant]

REACTIONS (13)
  - Breast cancer [None]
  - Barrett^s oesophagus [None]
  - Vitamin D decreased [None]
  - Lacrimation increased [None]
  - Dry eye [None]
  - Contrast media reaction [None]
  - Erythema annulare [None]
  - Arthropod bite [None]
  - Product substitution issue [None]
  - Adverse event [None]
  - Weight increased [None]
  - Dermatitis [None]
  - Skin ulcer [None]
